FAERS Safety Report 11924370 (Version 1)
Quarter: 2016Q1

REPORT INFORMATION
  Report Type: Spontaneous
  Country: US (occurrence: US)
  Receive Date: 20160118
  Receipt Date: 20160118
  Transmission Date: 20160526
  Serious: No
  Sender: FDA-Public Use
  Company Number: PHEH2016US001076

PATIENT
  Sex: Female

DRUGS (3)
  1. CENTRUM [Concomitant]
     Active Substance: VITAMINS
     Indication: SUPPLEMENTATION THERAPY
     Route: 065
  2. EXFORGE [Suspect]
     Active Substance: AMLODIPINE BESYLATE\VALSARTAN
     Indication: HYPERTENSION
     Dosage: (320 MG VALSARTAN, 10 MG AMLODIPINE)
     Route: 065
  3. AMLODIPINE [Suspect]
     Active Substance: AMLODIPINE BESYLATE
     Indication: HYPERTENSION
     Dosage: (320 MG VALSARTAN, 10 MG AMLODIPINE)
     Route: 065

REACTIONS (4)
  - Gastritis [Unknown]
  - Gastric disorder [Unknown]
  - Vomiting [Unknown]
  - Malaise [Unknown]
